FAERS Safety Report 10061366 (Version 1)
Quarter: 2014Q2

REPORT INFORMATION
  Report Type: Spontaneous
  Country: US (occurrence: US)
  Receive Date: 20140407
  Receipt Date: 20140407
  Transmission Date: 20141212
  Serious: No
  Sender: FDA-Public Use
  Company Number: US-DRREDDYS-USA/USA/14/0037737

PATIENT
  Sex: Female

DRUGS (1)
  1. LAMOTRIGINE EXTENDED RELEASE TABLETS [Suspect]
     Indication: CONVULSION
     Route: 048

REACTIONS (5)
  - Diarrhoea [Unknown]
  - Headache [Unknown]
  - Breath odour [Unknown]
  - Dry mouth [Unknown]
  - Abdominal pain upper [Unknown]
